FAERS Safety Report 6417105-6 (Version None)
Quarter: 2009Q4

REPORT INFORMATION
  Report Type: 
  Country: None (occurrence: None)
  Receive Date: 20091028
  Receipt Date: 20091022
  Transmission Date: 20100525
  Serious: Yes (Other)
  Sender: FDA-Public Use
  Company Number: CA-ALLERGAN-0907804US

PATIENT
  Age: 70 Year
  Sex: Female

DRUGS (6)
  1. BOTULINUM TOXIN TYPE A [Suspect]
     Indication: TORTICOLLIS
     Dosage: 125 UNITS, SINGLE
     Route: 030
     Dates: start: 20090226, end: 20090226
  2. BOTULINUM TOXIN TYPE A [Suspect]
     Dosage: 125 UNITS, SINGLE
     Route: 030
     Dates: start: 20081127, end: 20081127
  3. BOTULINUM TOXIN TYPE A [Suspect]
     Dosage: 125 UNITS, SINGLE
     Route: 030
     Dates: start: 20090603, end: 20090603
  4. BOTULINUM TOXIN TYPE A [Suspect]
     Dosage: 125 UNITS, SINGLE
     Route: 030
     Dates: start: 20090827, end: 20090827
  5. BOTULINUM TOXIN TYPE A [Suspect]
     Dosage: 125 UNITS, AVERAGE 2/YEAR
     Route: 030
     Dates: start: 20080529
  6. CIPRALEX [Concomitant]
     Indication: DRUG USE FOR UNKNOWN INDICATION
     Dosage: 10 MG, QD
     Dates: start: 20090226, end: 20090324

REACTIONS (2)
  - HEAD TITUBATION [None]
  - MUSCLE TWITCHING [None]
